FAERS Safety Report 5031437-8 (Version None)
Quarter: 2006Q2

REPORT INFORMATION
  Report Type: 
  Country: None (occurrence: None)
  Receive Date: 20060504
  Receipt Date: 20051223
  Transmission Date: 20061013
  Serious: Yes (Other)
  Sender: FDA-Public Use
  Company Number: SGB1-2005-00602

PATIENT
  Sex: Female

DRUGS (1)
  1. ANAGRELIDE HCL [Suspect]
     Indication: THROMBOCYTHAEMIA
     Dosage: 6 CAPSULES, A DAY
     Dates: start: 20020101

REACTIONS (2)
  - SUPRAVENTRICULAR EXTRASYSTOLES [None]
  - VENTRICULAR EXTRASYSTOLES [None]
